FAERS Safety Report 8320664-X (Version None)
Quarter: 2012Q2

REPORT INFORMATION
  Report Type: 
  Country: None (occurrence: None)
  Receive Date: 20120430
  Receipt Date: 20120419
  Transmission Date: 20120825
  Serious: Yes (Hospitalization, Other)
  Sender: FDA-Public Use
  Company Number: US-CELGENEUS-163-20785-11083622

PATIENT
  Sex: Female
  Weight: 70 kg

DRUGS (1)
  1. THALOMID [Suspect]
     Indication: MULTIPLE MYELOMA
     Dosage: 200 MILLIGRAM
     Route: 048
     Dates: start: 20110629

REACTIONS (10)
  - NEUROPATHY PERIPHERAL [None]
  - FALL [None]
  - LIMB DISCOMFORT [None]
  - LOSS OF CONSCIOUSNESS [None]
  - HYPERTENSION [None]
  - FRACTURE [None]
  - PRURITUS [None]
  - CONSTIPATION [None]
  - ORTHOSTATIC HYPOTENSION [None]
  - HERPES ZOSTER [None]
